FAERS Safety Report 7321326-8 (Version None)
Quarter: 2011Q1

REPORT INFORMATION
  Report Type: 
  Country: None (occurrence: None)
  Receive Date: 20110228
  Receipt Date: 20100423
  Transmission Date: 20110831
  Serious: Yes (Hospitalization, Other)
  Sender: FDA-Public Use
  Company Number: US-PFIZER INC-2010041875

PATIENT
  Sex: Female
  Weight: 77.1 kg

DRUGS (5)
  1. GEODON [Suspect]
     Indication: ALCOHOL ABUSE
  2. GEODON [Suspect]
     Indication: DEPRESSION
  3. GEODON [Suspect]
     Indication: SCHIZOAFFECTIVE DISORDER
     Dosage: 180 MG, 1X/DAY
     Route: 048
     Dates: start: 20070104
  4. CYMBALTA [Concomitant]
     Dosage: 60 MG, 2X/DAY
  5. CAMPRAL [Concomitant]
     Dosage: 666 MG, 3X/DAY

REACTIONS (2)
  - AKATHISIA [None]
  - TARDIVE DYSKINESIA [None]
